FAERS Safety Report 7384680-7 (Version None)
Quarter: 2011Q1

REPORT INFORMATION
  Report Type: 
  Country: None (occurrence: None)
  Receive Date: 20110330
  Receipt Date: 20110316
  Transmission Date: 20110831
  Serious: Yes (Other)
  Sender: FDA-Public Use
  Company Number: PHHY2011US21994

PATIENT
  Sex: Female

DRUGS (1)
  1. EXFORGE [Suspect]
     Dosage: 160 MG OF VALS AND 5 MG OF AMLO PER DAY

REACTIONS (3)
  - DISABILITY [None]
  - BLOOD PRESSURE INCREASED [None]
  - MULTIPLE FRACTURES [None]
